FAERS Safety Report 17729564 (Version 1)
Quarter: 2020Q2

REPORT INFORMATION
  Report Type: Spontaneous
  Country: US (occurrence: US)
  Receive Date: 20200430
  Receipt Date: 20200430
  Transmission Date: 20200714
  Serious: Yes (Other)
  Sender: FDA-Public Use
  Company Number: None

PATIENT
  Age: 69 Year
  Sex: Female
  Weight: 81 kg

DRUGS (6)
  1. SOLIFENACIN [Suspect]
     Active Substance: SOLIFENACIN
     Indication: BLADDER SPASM
     Dosage: ?          QUANTITY:1 TABLET(S);?
     Dates: start: 20200428, end: 20200429
  2. MEDICATION FOR HIGH BLOOD PRESSURE [Concomitant]
     Active Substance: UNSPECIFIED INGREDIENT
  3. MEDICATION FOR HIGH CHOLESTEROL [Concomitant]
  4. MEDICATION FOR ACID REFLUX [Concomitant]
  5. SOLIFENACIN [Suspect]
     Active Substance: SOLIFENACIN
     Indication: HYPERTONIC BLADDER
     Dosage: ?          QUANTITY:1 TABLET(S);?
     Dates: start: 20200428, end: 20200429
  6. POTASSIUM [Concomitant]
     Active Substance: POTASSIUM

REACTIONS (2)
  - Pain [None]
  - Urine output increased [None]

NARRATIVE: CASE EVENT DATE: 20200429
